FAERS Safety Report 24280206 (Version 1)
Quarter: 2024Q3

REPORT INFORMATION
  Report Type: Spontaneous
  Country: IT (occurrence: IT)
  Receive Date: 20240904
  Receipt Date: 20240904
  Transmission Date: 20241016
  Serious: Yes (Other)
  Sender: AUROBINDO
  Company Number: IT-ELI_LILLY_AND_COMPANY-IT202408006835

PATIENT
  Age: 59 Year

DRUGS (2)
  1. CARBOPLATIN [Suspect]
     Active Substance: CARBOPLATIN
     Indication: Product used for unknown indication
     Dosage: UNK
     Route: 065
     Dates: start: 20240607, end: 20240719
  2. PEMETREXED [Suspect]
     Active Substance: PEMETREXED
     Indication: Product used for unknown indication
     Dosage: UNK
     Route: 065
     Dates: start: 20240607, end: 20240719

REACTIONS (1)
  - Malignant neoplasm progression [Unknown]
